FAERS Safety Report 25633691 (Version 2)
Quarter: 2025Q3

REPORT INFORMATION
  Report Type: Spontaneous
  Country: CH (occurrence: CH)
  Receive Date: 20250801
  Receipt Date: 20250804
  Transmission Date: 20251021
  Serious: Yes (Other)
  Sender: PFIZER
  Company Number: None

PATIENT
  Age: 54 Year
  Sex: Female
  Weight: 90 kg

DRUGS (11)
  1. PANTOZOL [Suspect]
     Active Substance: PANTOPRAZOLE SODIUM
     Dosage: 20 MG, 1X/DAY
     Route: 048
  2. METHOTREXATE [Suspect]
     Active Substance: METHOTREXATE
     Indication: Rheumatoid arthritis
     Dosage: 17.5 MG, WEEKLY
     Route: 058
     Dates: start: 2024, end: 202507
  3. ASPIRIN [Suspect]
     Active Substance: ASPIRIN
     Indication: Systemic scleroderma
     Dosage: 100 MG, 1X/DAY
     Route: 048
     Dates: start: 20230426
  4. RITUXIMAB [Suspect]
     Active Substance: RITUXIMAB
  5. NIFEDIPINE [Concomitant]
     Active Substance: NIFEDIPINE
  6. SILDENAFIL [Concomitant]
     Active Substance: SILDENAFIL
  7. CALCIUM\CHOLECALCIFEROL [Concomitant]
     Active Substance: CALCIUM\CHOLECALCIFEROL
  8. LISINOPRIL [Concomitant]
     Active Substance: LISINOPRIL
     Indication: Hypertension
     Dosage: 20 MG, 1X/DAY
     Route: 048
     Dates: start: 20230426
  9. ZOLEDRONIC ACID [Concomitant]
     Active Substance: ZOLEDRONIC ACID
  10. PREDNISOLONE [Concomitant]
     Active Substance: PREDNISOLONE
  11. BOSENTAN [Concomitant]
     Active Substance: BOSENTAN

REACTIONS (1)
  - Pneumonitis [Unknown]

NARRATIVE: CASE EVENT DATE: 20250630
